FAERS Safety Report 15097316 (Version 1)
Quarter: 2018Q3

REPORT INFORMATION
  Report Type: Spontaneous
  Country: US (occurrence: US)
  Receive Date: 20180702
  Receipt Date: 20180702
  Transmission Date: 20181010
  Serious: No
  Sender: FDA-Public Use
  Company Number: US-PFIZER INC-2018264383

PATIENT
  Age: 43 Year
  Sex: Female
  Weight: 63.49 kg

DRUGS (5)
  1. DOXIL [Concomitant]
     Active Substance: DOXORUBICIN HYDROCHLORIDE
     Dosage: UNK
  2. ADRIAMYCIN [Concomitant]
     Active Substance: DOXORUBICIN HYDROCHLORIDE
     Dosage: UNK
  3. NEOSAR [Concomitant]
     Active Substance: CYCLOPHOSPHAMIDE
     Dosage: UNK
  4. TAXOTERE [Suspect]
     Active Substance: DOCETAXEL
     Indication: BREAST CANCER
     Dosage: 75 MG/M2, EVERY THREE WEEKS (6 CYCLES)
     Dates: start: 20130911, end: 20131226
  5. DOCETAXEL. [Suspect]
     Active Substance: DOCETAXEL
     Indication: BREAST CANCER
     Dosage: 75 MG/M2, EVERY THREE WEEKS (6 CYCLES)
     Dates: start: 20130911, end: 20131226

REACTIONS (5)
  - Hair disorder [Unknown]
  - Madarosis [Unknown]
  - Hair texture abnormal [Unknown]
  - Hair colour changes [Unknown]
  - Alopecia [Unknown]

NARRATIVE: CASE EVENT DATE: 201310
